FAERS Safety Report 6549334-5 (Version None)
Quarter: 2010Q1

REPORT INFORMATION
  Report Type: 
  Country: None (occurrence: None)
  Receive Date: 20100125
  Receipt Date: 20100112
  Transmission Date: 20100710
  Serious: Yes (Other)
  Sender: FDA-Public Use
  Company Number: PHHY2010GB02149

PATIENT
  Sex: Female

DRUGS (2)
  1. CLOZARIL [Suspect]
     Indication: SCHIZOPHRENIA
     Dosage: 300 MG, QD
     Dates: start: 20090401
  2. CITALOPRAM [Interacting]
     Indication: OBSESSIVE-COMPULSIVE DISORDER
     Dosage: 10 MG, QD

REACTIONS (3)
  - ANTIPSYCHOTIC DRUG LEVEL INCREASED [None]
  - DRUG INTERACTION [None]
  - OBSESSIVE-COMPULSIVE DISORDER [None]
